FAERS Safety Report 10265854 (Version 3)
Quarter: 2018Q4

REPORT INFORMATION
  Report Type: Spontaneous
  Country: DE (occurrence: DE)
  Receive Date: 20140627
  Receipt Date: 20181213
  Transmission Date: 20190204
  Serious: Yes (Hospitalization, Other)
  Sender: FDA-Public Use
  Company Number: DE-TEVA-475509GER

PATIENT
  Age: 32 Year
  Sex: Female
  Weight: 92 kg

DRUGS (2)
  1. FOLIC ACID/IODINE [Concomitant]
     Dosage: FOLIC ACID AND IODINE
  2. DIAZEPAM 5 MG [Suspect]
     Active Substance: DIAZEPAM
     Dates: start: 20090110

REACTIONS (4)
  - Disseminated intravascular coagulation [Unknown]
  - Hysterectomy [Unknown]
  - Maternal exposure during pregnancy [Unknown]
  - Fall [Unknown]

NARRATIVE: CASE EVENT DATE: 20090111
